FAERS Safety Report 13100997 (Version 2)
Quarter: 2017Q1

REPORT INFORMATION
  Report Type: Report from Study
  Country: FR (occurrence: FR)
  Receive Date: 20170110
  Receipt Date: 20170120
  Transmission Date: 20170428
  Serious: Yes (Death)
  Sender: FDA-Public Use
  Company Number: FR-PFIZER INC-2017005810

PATIENT
  Age: 74 Year
  Sex: Female
  Weight: 62 kg

DRUGS (1)
  1. PACLITAXEL. [Suspect]
     Active Substance: PACLITAXEL
     Indication: OESOPHAGEAL ADENOCARCINOMA
     Dosage: 138 MG, UNK
     Route: 042
     Dates: start: 20161117, end: 20161223

REACTIONS (1)
  - Death [Fatal]

NARRATIVE: CASE EVENT DATE: 20170102
